FAERS Safety Report 22871423 (Version 2)
Quarter: 2023Q4

REPORT INFORMATION
  Report Type: Spontaneous
  Country: US (occurrence: US)
  Receive Date: 20230828
  Receipt Date: 20231130
  Transmission Date: 20240109
  Serious: No
  Sender: FDA-Public Use
  Company Number: US-APELLIS PHARMACEUTICALS-APL-2023-002554

PATIENT
  Sex: Male

DRUGS (2)
  1. SYFOVRE [Suspect]
     Active Substance: PEGCETACOPLAN
     Indication: Dry age-related macular degeneration
     Dosage: UNK, OS
  2. SYFOVRE [Suspect]
     Active Substance: PEGCETACOPLAN
     Dosage: UNK, OD

REACTIONS (8)
  - Photophobia [Recovered/Resolved]
  - Photophobia [Recovered/Resolved]
  - Visual impairment [Recovering/Resolving]
  - Visual impairment [Recovering/Resolving]
  - Conjunctival haemorrhage [Unknown]
  - Conjunctival haemorrhage [Unknown]
  - Eye irritation [Unknown]
  - Eye irritation [Unknown]

NARRATIVE: CASE EVENT DATE: 20230701
